FAERS Safety Report 23860334 (Version 1)
Quarter: 2024Q2

REPORT INFORMATION
  Report Type: Spontaneous
  Country: RO (occurrence: RO)
  Receive Date: 20240515
  Receipt Date: 20240515
  Transmission Date: 20240716
  Serious: Yes (Other)
  Sender: FDA-Public Use
  Company Number: RO-PFIZER INC-PV202400061084

PATIENT
  Age: 32 Year
  Sex: Male

DRUGS (2)
  1. TOFACITINIB CITRATE [Suspect]
     Active Substance: TOFACITINIB CITRATE
     Indication: Colitis ulcerative
     Dosage: 10 MG, 2X/DAY
     Route: 048
     Dates: start: 202303, end: 202308
  2. TOFACITINIB CITRATE [Suspect]
     Active Substance: TOFACITINIB CITRATE
     Dosage: 5 MG, 2X/DAY
     Route: 048
     Dates: start: 202308

REACTIONS (4)
  - Rectal haemorrhage [Unknown]
  - Iron deficiency anaemia [Recovered/Resolved]
  - Fatigue [Unknown]
  - Faecal calprotectin increased [Recovered/Resolved]

NARRATIVE: CASE EVENT DATE: 20230501
